FAERS Safety Report 4610347-1 (Version None)
Quarter: 2005Q1

REPORT INFORMATION
  Report Type: 
  Country: None (occurrence: None)
  Receive Date: 20050316
  Receipt Date: 20050124
  Transmission Date: 20050727
  Serious: Yes (Death, Hospitalization)
  Sender: FDA-Public Use
  Company Number: US-ABBOTT-05P-163-0287679-00

PATIENT
  Sex: Male
  Weight: 74.91 kg

DRUGS (6)
  1. HUMIRA [Suspect]
     Indication: RHEUMATOID ARTHRITIS
     Route: 058
     Dates: start: 20040617, end: 20041101
  2. HUMIRA [Suspect]
  3. PREDNISONE [Concomitant]
     Indication: RHEUMATOID ARTHRITIS
     Route: 048
  4. METHOTREXATE [Concomitant]
     Indication: RHEUMATOID ARTHRITIS
     Route: 048
  5. PANTOPRAZOLE [Concomitant]
     Indication: GASTROOESOPHAGEAL REFLUX DISEASE
     Route: 048
  6. OXYCOCET [Concomitant]
     Indication: PAIN
     Route: 048

REACTIONS (3)
  - ARTHRALGIA [None]
  - PYREXIA [None]
  - STAPHYLOCOCCAL SEPSIS [None]
